FAERS Safety Report 15686092 (Version 1)
Quarter: 2018Q4

REPORT INFORMATION
  Report Type: Spontaneous
  Country: US (occurrence: US)
  Receive Date: 20181121
  Receipt Date: 20181121
  Transmission Date: 20190205
  Serious: Yes (Disabling)
  Sender: FDA-Public Use
  Company Number: None

PATIENT
  Age: 83 Year
  Sex: Female
  Weight: 61.23 kg

DRUGS (21)
  1. SINGULAIR [Concomitant]
     Active Substance: MONTELUKAST SODIUM
  2. NIACIN. [Concomitant]
     Active Substance: NIACIN
  3. CRESTOR [Concomitant]
     Active Substance: ROSUVASTATIN CALCIUM
  4. PROBIOTIC [Concomitant]
     Active Substance: PROBIOTICS NOS
  5. VITAMIN C [Concomitant]
     Active Substance: ASCORBIC ACID
  6. LINZESS [Suspect]
     Active Substance: LINACLOTIDE
     Indication: CONSTIPATION
     Dosage: QUANTITY:145/290;?
     Route: 048
     Dates: start: 20160914, end: 201611
  7. BENTYL [Concomitant]
     Active Substance: DICYCLOMINE HYDROCHLORIDE
  8. LIBRAX [Concomitant]
     Active Substance: CHLORDIAZEPOXIDE HYDROCHLORIDE\CLIDINIUM BROMIDE
  9. ASPIRIN. [Concomitant]
     Active Substance: ASPIRIN
  10. LOPID [Concomitant]
     Active Substance: GEMFIBROZIL
  11. SYMTHROID [Concomitant]
  12. ARECEPT [Concomitant]
  13. POLICOASONAL [Concomitant]
  14. LINZESS [Suspect]
     Active Substance: LINACLOTIDE
     Indication: DIARRHOEA
     Dosage: QUANTITY:145/290;?
     Route: 048
     Dates: start: 20160914, end: 201611
  15. BIOTIN [Concomitant]
     Active Substance: BIOTIN
  16. FOLIC ACID. [Concomitant]
     Active Substance: FOLIC ACID
  17. FENOFIBRATE. [Concomitant]
     Active Substance: FENOFIBRATE
  18. ALLOPURINOL. [Concomitant]
     Active Substance: ALLOPURINOL
  19. PHAZYME [Concomitant]
     Active Substance: DIMETHICONE 410
  20. BEANO [Concomitant]
     Active Substance: ASPERGILLUS NIGER .ALPHA.-GALACTOSIDASE
  21. PROTON [Concomitant]
     Active Substance: OMEPRAZOLE

REACTIONS (2)
  - Anal incontinence [None]
  - Diarrhoea [None]

NARRATIVE: CASE EVENT DATE: 20160914
